FAERS Safety Report 26135935 (Version 1)
Quarter: 2025Q4

REPORT INFORMATION
  Report Type: Spontaneous
  Country: EU (occurrence: EU)
  Receive Date: 20251209
  Receipt Date: 20251209
  Transmission Date: 20260117
  Serious: Yes (Life-Threatening, Hospitalization)
  Sender: NOVARTIS
  Company Number: None

PATIENT
  Age: 64 Year
  Sex: Male
  Weight: 86.6 kg

DRUGS (19)
  1. TAFINLAR [Suspect]
     Active Substance: DABRAFENIB MESYLATE
     Indication: Metastatic malignant melanoma
     Dosage: 150 MG, Q12H
     Route: 048
     Dates: start: 20251105
  2. MEKINIST [Suspect]
     Active Substance: TRAMETINIB DIMETHYL SULFOXIDE
     Indication: Metastatic malignant melanoma
     Dosage: 2 MG, QD
     Route: 048
     Dates: start: 20251105
  3. PANTOPRAZOLE [Suspect]
     Active Substance: PANTOPRAZOLE
     Indication: Gastrointestinal haemorrhage
     Dosage: 200 MG, QD
     Route: 042
     Dates: start: 20251030, end: 20251104
  4. PANTOPRAZOLE [Suspect]
     Active Substance: PANTOPRAZOLE
     Dosage: 200 MG, QD
     Route: 042
     Dates: start: 20251114, end: 20251121
  5. PANTOPRAZOLE [Suspect]
     Active Substance: PANTOPRAZOLE
     Dosage: 40 MG, Q12H
     Route: 048
     Dates: start: 20251105, end: 20251113
  6. PANTOPRAZOLE [Suspect]
     Active Substance: PANTOPRAZOLE
     Dosage: 40 MG, Q12H
     Route: 048
     Dates: start: 20251122, end: 20251122
  7. FLUCONAZOLE [Suspect]
     Active Substance: FLUCONAZOLE
     Indication: Systemic candida
     Dosage: 400 MG, QD
     Route: 042
     Dates: start: 20251117, end: 20251127
  8. BACTRIM [Suspect]
     Active Substance: SULFAMETHOXAZOLE\TRIMETHOPRIM
     Indication: Antibiotic prophylaxis
     Dosage: 1 DOSAGE FORM
     Route: 048
     Dates: start: 20251118, end: 20251118
  9. BACTRIM [Suspect]
     Active Substance: SULFAMETHOXAZOLE\TRIMETHOPRIM
     Dosage: 1 DOSAGE FORM
     Route: 048
     Dates: start: 20251121, end: 20251121
  10. MEROPENEM [Suspect]
     Active Substance: MEROPENEM
     Indication: Bacterial infection
     Dosage: 3 G, QD
     Route: 042
     Dates: start: 20251109, end: 20251114
  11. MEROPENEM [Suspect]
     Active Substance: MEROPENEM
     Dosage: 1 G, Q12H
     Route: 042
     Dates: start: 20251124
  12. URSODIOL [Concomitant]
     Active Substance: URSODIOL
     Indication: Cholestasis
     Dosage: 1000 MG, QD
     Route: 048
     Dates: start: 20251028
  13. FIDAXOMICIN [Concomitant]
     Active Substance: FIDAXOMICIN
     Indication: Clostridium difficile infection
     Dosage: 200 MG, Q12H
     Route: 048
     Dates: start: 20251114, end: 20251125
  14. Solupred [Concomitant]
     Indication: Haemophagocytic lymphohistiocytosis
     Dosage: 1 MG/KG, QD
     Route: 048
     Dates: start: 20251028, end: 20251030
  15. Solupred [Concomitant]
     Dosage: 2 MG/KG, QD
     Route: 048
     Dates: start: 20251030, end: 20251108
  16. Solupred [Concomitant]
     Dosage: 60 MG, QD
     Route: 048
     Dates: start: 20251118, end: 20251124
  17. Solupred [Concomitant]
     Dosage: 20 MG, QD (20 MG, ORALLY DISINTEGRATING TABLET)
     Route: 048
     Dates: start: 20251127
  18. SOLU-MEDROL [Concomitant]
     Active Substance: METHYLPREDNISOLONE SODIUM SUCCINATE
     Indication: Haemophagocytic lymphohistiocytosis
     Dosage: 500 MG, QD
     Route: 042
     Dates: start: 20251025, end: 20251027
  19. HYDROCORTISONE [Concomitant]
     Active Substance: HYDROCORTISONE
     Indication: Haemophagocytic lymphohistiocytosis
     Dosage: 200 MG, QD
     Route: 042
     Dates: start: 20251124, end: 20251125

REACTIONS (2)
  - Agranulocytosis [Not Recovered/Not Resolved]
  - Pancytopenia [Not Recovered/Not Resolved]

NARRATIVE: CASE EVENT DATE: 20251123
